FAERS Safety Report 11758040 (Version 1)
Quarter: 2015Q4

REPORT INFORMATION
  Report Type: Report from Study
  Country: US (occurrence: None)
  Receive Date: 20151117
  Receipt Date: 20151117
  Transmission Date: 20160304
  Serious: Yes (Hospitalization)
  Sender: FDA-Public Use
  Company Number: 2015US002779

PATIENT
  Age: 61 Year
  Sex: Male

DRUGS (12)
  1. LISINOPRIL/HYDROCHLOORTHIAZIDE (HYDROCHLOROTHIAZIDE, LISINOPRIL) [Concomitant]
  2. PREDNISONE. [Concomitant]
     Active Substance: PREDNISONE
  3. GLASSIA [Suspect]
     Active Substance: .ALPHA.1-PROTEINASE INHIBITOR HUMAN
     Indication: ALPHA-1 ANTI-TRYPSIN DEFICIENCY
     Dosage: 1000 MG/50 ML, WEEKLY, INTRAVENOUS
     Route: 042
  4. THEOPHYLLINE [Concomitant]
     Active Substance: THEOPHYLLINE ANHYDROUS
  5. SIMVASTATIN. [Concomitant]
     Active Substance: SIMVASTATIN
  6. OCUVITE [Suspect]
     Active Substance: VITAMINS
  7. CARISOPRODOL. [Concomitant]
     Active Substance: CARISOPRODOL
  8. ALENDRONATE (ALENDRONATE SODIUM) [Concomitant]
     Active Substance: ALENDRONATE SODIUM
  9. NORCO (HYDROCODONE BITARTRATE, PARACETAMOL) [Concomitant]
  10. ALBUTEROL (SALBUTAMOL) [Concomitant]
     Active Substance: ALBUTEROL
  11. COMBIVENT RESPIMAT (IPRATROPIUM BROMIDE, SALBUTAMOL SULFATE) [Concomitant]
  12. MONTELUKAST [Concomitant]
     Active Substance: MONTELUKAST SODIUM

REACTIONS (4)
  - Dyspnoea [None]
  - Cough [None]
  - Influenza like illness [None]
  - Fatigue [None]

NARRATIVE: CASE EVENT DATE: 201412
